FAERS Safety Report 4611398-3 (Version None)
Quarter: 2005Q1

REPORT INFORMATION
  Report Type: 
  Country: None (occurrence: None)
  Receive Date: 20050317
  Receipt Date: 20050309
  Transmission Date: 20050727
  Serious: Yes (Death, Other)
  Sender: FDA-Public Use
  Company Number: PHNR2005AU00622

PATIENT

DRUGS (2)
  1. CASPOFUNGIN [Suspect]
     Indication: FUNGAL INFECTION
  2. GLEEVEC [Suspect]
     Indication: CHRONIC MYELOID LEUKAEMIA

REACTIONS (3)
  - DEATH [None]
  - DRUG INTERACTION [None]
  - FUNGAL INFECTION [None]
